FAERS Safety Report 6033130-1 (Version None)
Quarter: 2009Q1

REPORT INFORMATION
  Report Type: 
  Country: None (occurrence: None)
  Receive Date: 20090109
  Receipt Date: 20090105
  Transmission Date: 20090719
  Serious: Yes (Other)
  Sender: FDA-Public Use
  Company Number: US-PFIZER INC-2009151836

PATIENT
  Sex: Female
  Weight: 65.77 kg

DRUGS (7)
  1. LIPITOR [Suspect]
     Indication: BLOOD CHOLESTEROL INCREASED
     Dates: start: 20081012, end: 20090101
  2. EFFEXOR [Concomitant]
     Dosage: UNK
  3. XANAX [Concomitant]
     Dosage: UNK
  4. ENDOCET [Concomitant]
     Indication: PAIN
     Dosage: UNK
  5. NORFLEX [Concomitant]
     Indication: PAIN
     Dosage: UNK
  6. PROMETRIUM [Concomitant]
  7. VALIUM [Concomitant]

REACTIONS (2)
  - ABASIA [None]
  - MUSCLE SPASMS [None]
